FAERS Safety Report 15904548 (Version 6)
Quarter: 2019Q2

REPORT INFORMATION
  Report Type: Report from Study
  Country: US (occurrence: US)
  Receive Date: 20190204
  Receipt Date: 20190528
  Transmission Date: 20190711
  Serious: Yes (Other)
  Sender: FDA-Public Use
  Company Number: US-PFIZER INC-2018536714

PATIENT
  Age: 66 Year
  Sex: Female

DRUGS (6)
  1. LISINOPRIL. [Concomitant]
     Active Substance: LISINOPRIL
     Indication: HYPERTENSION
     Dosage: 20 MG, DAILY
     Route: 048
     Dates: start: 20180719
  2. ANASTROZOLE. [Concomitant]
     Active Substance: ANASTROZOLE
     Dosage: UNK, DAILY
  3. FASLODEX [Concomitant]
     Active Substance: FULVESTRANT
     Indication: BREAST CANCER
     Dosage: 500 MG, MONTHLY
     Route: 030
     Dates: start: 20181219
  4. IBRANCE [Suspect]
     Active Substance: PALBOCICLIB
     Indication: BREAST CANCER
     Dosage: 125 MG, CYCLIC (DAILY FOR 21 DAYS AND OFF 7 DAYS)
     Route: 048
     Dates: start: 20181212
  5. ATORVASTATIN [Concomitant]
     Active Substance: ATORVASTATIN
     Indication: HYPERCHOLESTEROLAEMIA
     Dosage: 40 MG, DAILY
     Route: 048
     Dates: start: 20130220
  6. IBRANCE [Suspect]
     Active Substance: PALBOCICLIB
     Dosage: 100 MG, CYCLI DAILY FOR 21 DAYS AND OFF 7 DAYS
     Route: 048
     Dates: start: 20190219

REACTIONS (8)
  - Bone marrow failure [Unknown]
  - Dyspnoea [Recovered/Resolved]
  - Stomatitis [Recovered/Resolved]
  - Back pain [Unknown]
  - Pain in extremity [Unknown]
  - Product use issue [Unknown]
  - Nasopharyngitis [Unknown]
  - Oral pain [Unknown]

NARRATIVE: CASE EVENT DATE: 2019
